FAERS Safety Report 4934708-6 (Version None)
Quarter: 2006Q1

REPORT INFORMATION
  Report Type: 
  Country: None (occurrence: None)
  Receive Date: 20060307
  Receipt Date: 20051011
  Transmission Date: 20060701
  Serious: Yes (Hospitalization)
  Sender: FDA-Public Use
  Company Number: US-MERCK-0510USA06631

PATIENT
  Age: 74 Year
  Sex: Male
  Weight: 105 kg

DRUGS (19)
  1. VIOXX [Suspect]
     Indication: ARTHRITIS
     Route: 048
     Dates: end: 20040901
  2. ASPIRIN [Concomitant]
     Route: 065
  3. ISOSORBIDE [Concomitant]
     Route: 065
  4. PRAVACHOL [Concomitant]
     Route: 065
  5. COREG [Concomitant]
     Route: 065
  6. PROTONIX [Concomitant]
     Route: 065
  7. CELEXA [Concomitant]
     Route: 065
  8. DEPAKOTE [Concomitant]
     Route: 065
  9. DARVOCET [Concomitant]
     Route: 065
  10. MUCINEX [Concomitant]
     Indication: SINUS CONGESTION
     Route: 065
  11. COUMADIN [Concomitant]
     Indication: ANTICOAGULANT THERAPY
     Route: 065
  12. FUROSEMIDE [Concomitant]
     Indication: FLUID RETENTION
     Route: 065
  13. PRILOSEC [Concomitant]
     Indication: GASTRIC DISORDER
     Route: 065
  14. PLAVIX [Concomitant]
     Indication: CARDIAC DISORDER
     Route: 065
  15. VASCOR [Concomitant]
     Route: 065
  16. LORAZEPAM [Concomitant]
     Route: 065
  17. NITROLINGUAL [Concomitant]
     Route: 065
  18. CARDIZEM [Concomitant]
     Route: 065
  19. ULTRAM [Concomitant]
     Route: 065

REACTIONS (8)
  - AMNESIA [None]
  - CEREBROVASCULAR ACCIDENT [None]
  - CHEST PAIN [None]
  - CORONARY ARTERY DISEASE [None]
  - GALLBLADDER DISORDER [None]
  - JOINT SWELLING [None]
  - PHIMOSIS [None]
  - URINARY TRACT DISORDER [None]
